FAERS Safety Report 8327919-3 (Version None)
Quarter: 2012Q2

REPORT INFORMATION
  Report Type: 
  Country: None (occurrence: None)
  Receive Date: 20120502
  Receipt Date: 20120418
  Transmission Date: 20120825
  Serious: Yes (Life-Threatening)
  Sender: FDA-Public Use
  Company Number: CN-JNJFOC-20120413523

PATIENT
  Sex: Male
  Weight: 85 kg

DRUGS (1)
  1. ITRACONAZOLE [Suspect]
     Indication: LUNG INFECTION
     Route: 042
     Dates: start: 20110707, end: 20110707

REACTIONS (2)
  - CHEST DISCOMFORT [None]
  - DYSPNOEA [None]
